FAERS Safety Report 17899984 (Version 1)
Quarter: 2020Q2

REPORT INFORMATION
  Report Type: Spontaneous
  Country: US (occurrence: US)
  Receive Date: 20200615
  Receipt Date: 20200615
  Transmission Date: 20200714
  Serious: Yes (Hospitalization)
  Sender: FDA-Public Use
  Company Number: None

PATIENT
  Sex: Female

DRUGS (37)
  1. BENZONATATE. [Concomitant]
     Active Substance: BENZONATATE
  2. BUSPIRONE [Concomitant]
     Active Substance: BUSPIRONE HYDROCHLORIDE
  3. CYANOCOSALAM [Concomitant]
  4. CYCLOBENZAPR [Concomitant]
     Active Substance: CYCLOBENZAPRINE
  5. DOXYCYCL HYC [Concomitant]
  6. PONARIS [Concomitant]
  7. POT CL MICRO [Concomitant]
  8. URSODIOL. [Concomitant]
     Active Substance: URSODIOL
  9. AZELASTINE. [Concomitant]
     Active Substance: AZELASTINE HYDROCHLORIDE
  10. DIGOXIN. [Concomitant]
     Active Substance: DIGOXIN
  11. POT CHLORIDE [Concomitant]
     Active Substance: POTASSIUM CHLORIDE
  12. RHOPRESSA [Concomitant]
     Active Substance: NETARSUDIL MESYLATE
  13. LUMIGAN [Concomitant]
     Active Substance: BIMATOPROST
  14. BUMETANIDE. [Concomitant]
     Active Substance: BUMETANIDE
  15. DILTIAZEM ER [Concomitant]
     Active Substance: DILTIAZEM
  16. FLORASTOR [Concomitant]
     Active Substance: SACCHAROMYCES CEREVISIAE
  17. LOSARTAN POT [Concomitant]
     Active Substance: LOSARTAN POTASSIUM
  18. MATZIM LA [Concomitant]
     Active Substance: DILTIAZEM HYDROCHLORIDE
  19. METRONIDAZOL [Concomitant]
     Active Substance: METRONIDAZOLE
  20. TRIAMCINOLON CRE [Concomitant]
  21. ESBRIET [Suspect]
     Active Substance: PIRFENIDONE
     Indication: IDIOPATHIC PULMONARY FIBROSIS
     Dosage: 1 PEN QWK SQ
     Route: 058
     Dates: start: 20181006
  22. JANUMET XR [Concomitant]
     Active Substance: METFORMIN HYDROCHLORIDE\SITAGLIPTIN PHOSPHATE
  23. MAG OXIDE [Concomitant]
     Active Substance: MAGNESIUM OXIDE
  24. ONDANSETRON [Concomitant]
     Active Substance: ONDANSETRON
  25. FOLBEE [Concomitant]
     Active Substance: CYANOCOBALAMIN\FOLIC ACID\PYRIDOXINE HYDROCHLORIDE
  26. KLOR-CON M10 [Concomitant]
     Active Substance: POTASSIUM CHLORIDE
  27. METOPROL TAR [Concomitant]
  28. ROPINIROLE. [Concomitant]
     Active Substance: ROPINIROLE
  29. ROSUVASTATIN. [Concomitant]
     Active Substance: ROSUVASTATIN
  30. AZEL/FLUTIC [Concomitant]
  31. AZELAIC ACID. [Concomitant]
     Active Substance: AZELAIC ACID
  32. DILTIAZEM. [Concomitant]
     Active Substance: DILTIAZEM
  33. DYMISTA [Concomitant]
     Active Substance: AZELASTINE HYDROCHLORIDE\FLUTICASONE PROPIONATE
  34. ELIQUIS [Concomitant]
     Active Substance: APIXABAN
  35. FLUCONAZOLE. [Concomitant]
     Active Substance: FLUCONAZOLE
  36. NITROGLYCRN [Concomitant]
  37. OMEPRAZOLE. [Concomitant]
     Active Substance: OMEPRAZOLE

REACTIONS (2)
  - Cholelithotomy [None]
  - Therapy interrupted [None]
